FAERS Safety Report 21988951 (Version 2)
Quarter: 2023Q4

REPORT INFORMATION
  Report Type: Spontaneous
  Country: ES (occurrence: ES)
  Receive Date: 20230214
  Receipt Date: 20231004
  Transmission Date: 20240110
  Serious: Yes (Other)
  Sender: FDA-Public Use
  Company Number: None

PATIENT
  Age: 55 Year
  Sex: Female
  Weight: 45.8 kg

DRUGS (10)
  1. ZOLEDRONIC ACID [Suspect]
     Active Substance: ZOLEDRONIC ACID
     Indication: Osteoporosis
     Dosage: 1 ANNUAL DOSE
     Dates: start: 20191204, end: 20211210
  2. DENOSUMAB [Suspect]
     Active Substance: DENOSUMAB
     Indication: Osteoporosis
     Dosage: STRENGTH: 60 MG SOLUTION FOR INJECTION IN PRE-FILLED SYRINGE
     Dates: start: 20190913, end: 20191204
  3. OPTRUMA [Concomitant]
     Active Substance: RALOXIFENE HYDROCHLORIDE
  4. EMTRICITABINE\TENOFOVIR DISOPROXIL [Concomitant]
     Active Substance: EMTRICITABINE\TENOFOVIR DISOPROXIL
     Indication: HIV test positive
     Dates: start: 20190325
  5. ABACAVIR\LAMIVUDINE [Concomitant]
     Active Substance: ABACAVIR\LAMIVUDINE
     Dosage: DR. REDDYS 600 MG/300 MG FILM-COATED TABLETS EFG
  6. DOLUTEGRAVIR [Concomitant]
     Active Substance: DOLUTEGRAVIR
  7. CHONDROITIN [Concomitant]
     Active Substance: CHONDROITIN
     Dates: start: 20171204
  8. Melatonin, Zinc [Concomitant]
  9. LYRICA [Concomitant]
     Active Substance: PREGABALIN
  10. LORMETAZEPAM [Concomitant]
     Active Substance: LORMETAZEPAM
     Indication: Insomnia
     Dosage: STRENGTH: 2 MG
     Dates: start: 20190820

REACTIONS (12)
  - Arthralgia [Recovering/Resolving]
  - Disorientation [Recovering/Resolving]
  - Weight increased [Recovering/Resolving]
  - Amnesia [Recovering/Resolving]
  - Acute myocardial infarction [Recovering/Resolving]
  - Paraesthesia [Recovering/Resolving]
  - Fatigue [Recovering/Resolving]
  - Vomiting [Recovering/Resolving]
  - Myocardial ischaemia [Recovering/Resolving]
  - Alopecia [Recovering/Resolving]
  - Osteonecrosis of jaw [Recovering/Resolving]
  - Blood cholesterol increased [Recovering/Resolving]

NARRATIVE: CASE EVENT DATE: 20200203
